FAERS Safety Report 8227458-4 (Version None)
Quarter: 2012Q1

REPORT INFORMATION
  Report Type: 
  Country: None (occurrence: None)
  Receive Date: 20120322
  Receipt Date: 20120316
  Transmission Date: 20120608
  Serious: Yes (Hospitalization)
  Sender: FDA-Public Use
  Company Number: US-BAYER-2012-026772

PATIENT
  Age: 18 Year
  Sex: Female
  Weight: 90.7 kg

DRUGS (4)
  1. MINOCYCLINE HCL [Concomitant]
     Dosage: UNK UNK, BID
  2. MULTI-VITAMIN [Concomitant]
     Dosage: UNK UNK, QD
  3. YASMIN [Suspect]
  4. CALCIUM CARBONATE [Concomitant]
     Dosage: UNK UNK, QD

REACTIONS (1)
  - PULMONARY EMBOLISM [None]
